FAERS Safety Report 21890731 (Version 2)
Quarter: 2023Q1

REPORT INFORMATION
  Report Type: Spontaneous
  Country: GB (occurrence: GB)
  Receive Date: 20230120
  Receipt Date: 20230208
  Transmission Date: 20230418
  Serious: Yes (Other)
  Sender: FDA-Public Use
  Company Number: GB-002147023-NVSC2023GB009384

PATIENT
  Sex: Female

DRUGS (1)
  1. TOBRADEX [Suspect]
     Active Substance: DEXAMETHASONE\TOBRAMYCIN
     Indication: Postoperative care
     Dosage: UNK
     Route: 065

REACTIONS (8)
  - Maculopathy [Unknown]
  - Intraocular pressure test abnormal [Recovered/Resolved]
  - Conjunctival disorder [Unknown]
  - Ocular hyperaemia [Recovered/Resolved]
  - Dry eye [Recovered/Resolved]
  - Eye irritation [Recovered/Resolved]
  - Dizziness [Recovered/Resolved]
  - Ocular discomfort [Not Recovered/Not Resolved]
